FAERS Safety Report 6653048-0 (Version None)
Quarter: 2010Q1

REPORT INFORMATION
  Report Type: 
  Country: None (occurrence: None)
  Receive Date: 20100326
  Receipt Date: 20100316
  Transmission Date: 20100710
  Serious: Yes (Other)
  Sender: FDA-Public Use
  Company Number: PHHY2010JP15173

PATIENT
  Age: 86 Year
  Sex: Female

DRUGS (3)
  1. RASILEZ [Suspect]
     Indication: HYPERTENSION
     Dosage: 150 MG DAILY
     Route: 048
  2. ADALAT CC [Concomitant]
     Dosage: 40 MG
     Route: 048
  3. AMLODIPINE [Concomitant]
     Dosage: 5 MG
     Route: 048

REACTIONS (1)
  - HAEMORRHAGIC DIATHESIS [None]
